FAERS Safety Report 22246864 (Version 2)
Quarter: 2023Q2

REPORT INFORMATION
  Report Type: Spontaneous
  Country: CN (occurrence: CN)
  Receive Date: 20230424
  Receipt Date: 20230426
  Transmission Date: 20230721
  Serious: Yes (Hospitalization)
  Sender: FDA-Public Use
  Company Number: CN-APIL-2312524US

PATIENT
  Sex: Female

DRUGS (1)
  1. MESALAMINE [Suspect]
     Active Substance: MESALAMINE
     Indication: Colitis
     Dosage: 1 G, TID
     Dates: start: 201805, end: 20181031

REACTIONS (2)
  - Tubulointerstitial nephritis [Recovering/Resolving]
  - Glomerulosclerosis [Recovering/Resolving]
